FAERS Safety Report 23274684 (Version 2)
Quarter: 2024Q1

REPORT INFORMATION
  Report Type: Report from Study
  Country: CL (occurrence: CL)
  Receive Date: 20231208
  Receipt Date: 20240103
  Transmission Date: 20240409
  Serious: Yes (Death, Hospitalization, Other)
  Sender: FDA-Public Use
  Company Number: CL-JNJFOC-20231207143

PATIENT
  Age: 69 Year
  Sex: Female

DRUGS (1)
  1. SIMPONI [Suspect]
     Active Substance: GOLIMUMAB
     Indication: Rheumatoid arthritis
     Route: 058
     Dates: start: 20230223

REACTIONS (4)
  - Pneumonia [Fatal]
  - Rheumatoid arthritis [Fatal]
  - Cardiac failure [Unknown]
  - Respiratory tract infection viral [Not Recovered/Not Resolved]
